FAERS Safety Report 13256304 (Version 1)
Quarter: 2017Q1

REPORT INFORMATION
  Report Type: Spontaneous
  Country: US (occurrence: US)
  Receive Date: 20170221
  Receipt Date: 20170221
  Transmission Date: 20170428
  Serious: No
  Sender: FDA-Public Use
  Company Number: None

PATIENT
  Age: 77 Year
  Sex: Male

DRUGS (1)
  1. FENTANYL 100 MCG [Suspect]
     Active Substance: FENTANYL

REACTIONS (3)
  - Dyspnoea [None]
  - Peripheral swelling [None]
  - Respiratory depression [None]

NARRATIVE: CASE EVENT DATE: 20150113
